FAERS Safety Report 13189896 (Version 1)
Quarter: 2017Q1

REPORT INFORMATION
  Report Type: Spontaneous
  Country: CH (occurrence: CH)
  Receive Date: 20170206
  Receipt Date: 20170206
  Transmission Date: 20170428
  Serious: Yes (Death)
  Sender: FDA-Public Use
  Company Number: CH-TEVA-734901ISR

PATIENT
  Age: 77 Year
  Sex: Male
  Weight: 65 kg

DRUGS (17)
  1. PANTOPRAZOL MEPHA [Concomitant]
     Active Substance: PANTOPRAZOLE SODIUM
     Indication: PROPHYLAXIS AGAINST GASTROINTESTINAL ULCER
     Dosage: 40 MILLIGRAM DAILY;
     Route: 048
  2. TORASEMID-MEPHA [Concomitant]
     Active Substance: TORSEMIDE
     Indication: CARDIAC FAILURE
     Dosage: 30 MILLIGRAM DAILY;
     Route: 048
  3. PIPERACILLIN/TAZOBACTAM [Suspect]
     Active Substance: PIPERACILLIN SODIUM\TAZOBACTAM SODIUM
     Indication: SYSTEMIC INFECTION
     Dosage: 4.5 GRAM DAILY; APPLICATION PERMANENT INFUSION WITH INFUSION PUMP. PRODUCED BY HOSPITAL PHARMACY
     Route: 042
     Dates: start: 20161116, end: 20170107
  4. MAGNESIOCARD [Concomitant]
     Active Substance: MAGNESIUM ASPARTATE HYDROCHLORIDE
     Indication: HYPOMAGNESAEMIA
     Dosage: 5 MILLIMOL DAILY; STRENGTH REPORTED AS: 615 MG
     Route: 048
  5. VANCOCIN [Suspect]
     Active Substance: VANCOMYCIN HYDROCHLORIDE
     Indication: SYSTEMIC INFECTION
     Dosage: 500 MILLIGRAM DAILY;
     Route: 042
     Dates: start: 20161201, end: 20170107
  6. IMODIUM [Concomitant]
     Active Substance: LOPERAMIDE HYDROCHLORIDE
     Indication: DIARRHOEA
     Route: 048
  7. ATORVASTATIN-MEPHA [Concomitant]
     Active Substance: ATORVASTATIN
     Indication: CORONARY ARTERY DISEASE
     Dosage: 20 MILLIGRAM DAILY;
     Route: 048
  8. ASPIRIN CARDIO [Concomitant]
     Active Substance: ASPIRIN
     Indication: CORONARY ARTERY DISEASE
     Dosage: 100 MILLIGRAM DAILY;
     Route: 048
  9. HYDROCORTISON GALEPHARM [Concomitant]
     Indication: GLUCOCORTICOID DEFICIENCY
     Dosage: 15 MILLIGRAM DAILY;
     Route: 048
  10. NEO-MERCAZOLE [Concomitant]
     Active Substance: CARBIMAZOLE
     Indication: HYPERTHYROIDISM
     Dosage: 15 MILLIGRAM DAILY;
     Route: 048
  11. VI-DE 3 [Concomitant]
     Active Substance: CHOLECALCIFEROL
     Indication: VITAMIN SUPPLEMENTATION
     Dosage: 8 GTT DAILY;
     Route: 048
  12. ALLOPURINOL. [Concomitant]
     Active Substance: ALLOPURINOL
     Indication: GOUT
     Dosage: 100 MILLIGRAM DAILY;
     Route: 048
  13. SERALIN MEPHA [Suspect]
     Active Substance: SERTRALINE HYDROCHLORIDE
     Indication: ADJUSTMENT DISORDER WITH DEPRESSED MOOD
     Dosage: 25 MILLIGRAM DAILY; DOSE 50 MG= TAKEN 0.5 TBL PER DAY
     Route: 048
  14. CALCIUM ACETATE PHOSPHATBINDER [Concomitant]
     Indication: HYPOPHOSPHATAEMIA
     Dosage: 800 MILLIGRAM DAILY;
     Route: 048
  15. TORASEMID-MEPHA [Concomitant]
     Active Substance: TORSEMIDE
     Indication: OEDEMA
  16. CANCIDAS [Suspect]
     Active Substance: CASPOFUNGIN ACETATE
     Indication: INFECTIVE ANEURYSM
     Route: 042
     Dates: start: 20161115, end: 20170107
  17. CALCIUM ACETATE PHOSPHATBINDER [Concomitant]
     Indication: HYPOCALCAEMIA

REACTIONS (1)
  - Ventricular fibrillation [Fatal]

NARRATIVE: CASE EVENT DATE: 20170107
